FAERS Safety Report 9593838 (Version 1)
Quarter: 2013Q4

REPORT INFORMATION
  Report Type: Spontaneous
  Country: PT (occurrence: PT)
  Receive Date: 20131004
  Receipt Date: 20131004
  Transmission Date: 20140711
  Serious: Yes (Hospitalization)
  Sender: FDA-Public Use
  Company Number: PT-TEVA-433972ISR

PATIENT
  Age: 69 Year
  Sex: Female
  Weight: 60 kg

DRUGS (3)
  1. VINCRISTINA TEVA 1 MG/ML SOLU??O INJECT?VEL [Suspect]
     Indication: ACUTE LYMPHOCYTIC LEUKAEMIA
     Route: 042
     Dates: start: 20081108, end: 20081122
  2. ASPARAGINASE [Interacting]
     Indication: ACUTE LYMPHOCYTIC LEUKAEMIA
     Dosage: 16000 IU (INTERNATIONAL UNIT) DAILY;
     Route: 030
     Dates: start: 20081108, end: 20081125
  3. DOXORUBICIN HYDROCHLORIDE [Concomitant]
     Indication: ACUTE LYMPHOCYTIC LEUKAEMIA
     Route: 042
     Dates: start: 20081108, end: 20081122

REACTIONS (8)
  - Abdominal pain [Recovered/Resolved]
  - Apathy [Recovered/Resolved]
  - Constipation [Recovered/Resolved]
  - Hypofibrinogenaemia [Recovered/Resolved]
  - Fatigue [Recovered/Resolved]
  - Confusional state [Recovered/Resolved]
  - Altered state of consciousness [Recovered/Resolved]
  - Drug interaction [Recovered/Resolved]
